FAERS Safety Report 17178108 (Version 1)
Quarter: 2019Q4

REPORT INFORMATION
  Report Type: Spontaneous
  Country: US (occurrence: US)
  Receive Date: 20191219
  Receipt Date: 20191219
  Transmission Date: 20200122
  Serious: No
  Sender: FDA-Public Use
  Company Number: US-009507513-1911USA009072

PATIENT
  Sex: Female

DRUGS (2)
  1. FOLLISTIM AQ [Concomitant]
     Active Substance: FOLLITROPIN
  2. GANIRELIX ACETATE INJECTION [Suspect]
     Active Substance: GANIRELIX ACETATE
     Dosage: STRENGTH: 250/.5 (UNIT NOT REPORTED), INDICATION: IN VITRO FERTILIZATION TREATMENT
     Route: 058

REACTIONS (1)
  - Ovulation induction [Unknown]

NARRATIVE: CASE EVENT DATE: 2019
